FAERS Safety Report 23852991 (Version 2)
Quarter: 2024Q2

REPORT INFORMATION
  Report Type: Spontaneous
  Country: US (occurrence: US)
  Receive Date: 20240514
  Receipt Date: 20240610
  Transmission Date: 20240716
  Serious: No
  Sender: FDA-Public Use
  Company Number: US-PFIZER INC-202400104959

PATIENT
  Age: 11 Year
  Sex: Male
  Weight: 41.28 kg

DRUGS (1)
  1. GENOTROPIN [Suspect]
     Active Substance: SOMATROPIN
     Indication: Growth hormone deficiency
     Dosage: 2.2MG INJECTED SIX TIMES A WEEK
     Route: 058

REACTIONS (4)
  - Device use issue [Recovered/Resolved]
  - Drug dose omission by device [Recovered/Resolved]
  - Device power source issue [Recovered/Resolved]
  - Device delivery system issue [Recovered/Resolved]

NARRATIVE: CASE EVENT DATE: 20240506
